FAERS Safety Report 5050989-5 (Version None)
Quarter: 2006Q3

REPORT INFORMATION
  Report Type: 
  Country: None (occurrence: None)
  Receive Date: 20060714
  Receipt Date: 20060609
  Transmission Date: 20061208
  Serious: Yes (Other)
  Sender: FDA-Public Use
  Company Number: PHBS2006JP08863

PATIENT
  Age: 80 Year
  Sex: Male

DRUGS (5)
  1. CALBLOCK [Suspect]
     Dosage: 16 MG/DAY
     Route: 048
     Dates: start: 20040101, end: 20060609
  2. TAKEPRON [Concomitant]
     Dosage: 15 MG, UNK
     Route: 048
     Dates: start: 20060417
  3. MOBIC [Concomitant]
     Dosage: 10 MG, UNK
     Route: 048
     Dates: start: 20050801
  4. DIOVAN [Suspect]
     Dosage: 80 MG/DAY
     Route: 048
     Dates: start: 20040101, end: 20060609
  5. ALPRAZOLAM [Concomitant]
     Dates: start: 20050801

REACTIONS (1)
  - ATRIOVENTRICULAR BLOCK [None]
